FAERS Safety Report 19049405 (Version 1)
Quarter: 2021Q1

REPORT INFORMATION
  Report Type: Other
  Country: CA (occurrence: CA)
  Receive Date: 20210323
  Receipt Date: 20210323
  Transmission Date: 20210420
  Serious: Yes (Other)
  Sender: FDA-Public Use
  Company Number: CA-TARO-2021TAR00273

PATIENT
  Age: 13 Year
  Sex: Female

DRUGS (1)
  1. BETADERM [Suspect]
     Active Substance: BETAMETHASONE VALERATE
     Indication: PRODUCT USED FOR UNKNOWN INDICATION
     Dosage: 0.1 %
     Route: 061

REACTIONS (2)
  - Skin exfoliation [Unknown]
  - Skin burning sensation [Unknown]
